FAERS Safety Report 13047904 (Version 2)
Quarter: 2017Q1

REPORT INFORMATION
  Report Type: Spontaneous
  Country: JP (occurrence: JP)
  Receive Date: 20161220
  Receipt Date: 20170208
  Transmission Date: 20170428
  Serious: Yes (Hospitalization)
  Sender: FDA-Public Use
  Company Number: JP-ABBVIE-16P-087-1816284-00

PATIENT
  Age: 58 Year
  Sex: Male
  Weight: 42 kg

DRUGS (9)
  1. CLARITH [Suspect]
     Active Substance: CLARITHROMYCIN
     Indication: PULMONARY FIBROSIS
  2. ETHAMBUTOL HYDROCHLORIDE. [Suspect]
     Active Substance: ETHAMBUTOL HYDROCHLORIDE
     Indication: PULMONARY FIBROSIS
  3. CEFMETAZOLE [Suspect]
     Active Substance: CEFMETAZOLE
     Indication: ILEUS
     Route: 065
  4. CEFMETAZOLE [Suspect]
     Active Substance: CEFMETAZOLE
     Indication: PULMONARY FIBROSIS
  5. RIFAMPICIN [Suspect]
     Active Substance: RIFAMPIN
     Indication: PULMONARY FIBROSIS
  6. ETHAMBUTOL HYDROCHLORIDE. [Suspect]
     Active Substance: ETHAMBUTOL HYDROCHLORIDE
     Indication: MYCOBACTERIAL INFECTION
     Route: 048
  7. RIFAMPICIN [Suspect]
     Active Substance: RIFAMPIN
     Indication: MYCOBACTERIAL INFECTION
     Route: 048
  8. CLARITH [Suspect]
     Active Substance: CLARITHROMYCIN
     Indication: MYCOBACTERIAL INFECTION
     Route: 048
  9. CEFMETAZOLE [Suspect]
     Active Substance: CEFMETAZOLE
     Indication: MYCOBACTERIAL INFECTION

REACTIONS (3)
  - Coagulopathy [Unknown]
  - Vitamin K deficiency [Unknown]
  - Dysbacteriosis [Unknown]
